FAERS Safety Report 4914424-7 (Version None)
Quarter: 2006Q1

REPORT INFORMATION
  Report Type: 
  Country: None (occurrence: None)
  Receive Date: 20060216
  Receipt Date: 20051214
  Transmission Date: 20060701
  Serious: Yes (Other)
  Sender: FDA-Public Use
  Company Number: GB-ABBOTT-05P-167-0319690-00

PATIENT
  Sex: Female
  Weight: 64.5 kg

DRUGS (5)
  1. HUMIRA [Suspect]
     Indication: DRUG USE FOR UNKNOWN INDICATION
  2. ACETAMINOPHEN [Concomitant]
     Indication: ANALGESIC EFFECT
     Route: 048
  3. DICLOFENAC [Concomitant]
     Indication: ANALGESIC EFFECT
     Route: 048
  4. METHOTREXATE [Concomitant]
     Indication: PSORIASIS
     Route: 048
  5. FOLIC ACID [Concomitant]
     Indication: DRUG USE FOR UNKNOWN INDICATION
     Route: 048

REACTIONS (1)
  - RASH PUSTULAR [None]
